FAERS Safety Report 18913149 (Version 1)
Quarter: 2021Q1

REPORT INFORMATION
  Report Type: Other
  Country: US (occurrence: US)
  Receive Date: 20210219
  Receipt Date: 20210219
  Transmission Date: 20210420
  Serious: Yes (Other)
  Sender: FDA-Public Use
  Company Number: US-ROCHE-2767932

PATIENT

DRUGS (3)
  1. CAPECITABINE. [Suspect]
     Active Substance: CAPECITABINE
     Indication: NEOPLASM MALIGNANT
     Route: 048
  2. IBRUTINIB [Suspect]
     Active Substance: IBRUTINIB
     Indication: NEOPLASM MALIGNANT
     Route: 065
  3. ANASTROZOLE. [Suspect]
     Active Substance: ANASTROZOLE
     Indication: NEOPLASM MALIGNANT
     Route: 048

REACTIONS (31)
  - Oedema [Unknown]
  - Palmar-plantar erythrodysaesthesia syndrome [Unknown]
  - Vulvovaginal dryness [Unknown]
  - Weight increased [Unknown]
  - Decreased appetite [Unknown]
  - Lacrimation increased [Unknown]
  - Pruritus [Unknown]
  - Hair growth abnormal [Unknown]
  - Back pain [Unknown]
  - Vomiting [Unknown]
  - Neuropathy peripheral [Unknown]
  - Rash [Unknown]
  - Amnesia [Unknown]
  - Blister [Unknown]
  - Insomnia [Unknown]
  - Fatigue [Unknown]
  - Musculoskeletal pain [Unknown]
  - Constipation [Unknown]
  - Headache [Unknown]
  - Blood pressure increased [Unknown]
  - Nausea [Unknown]
  - Nail growth abnormal [Unknown]
  - Dry skin [Unknown]
  - Hot flush [Unknown]
  - Diarrhoea [Unknown]
  - Arthralgia [Unknown]
  - Increased appetite [Unknown]
  - Dizziness [Unknown]
  - Haemorrhage [Unknown]
  - Deep vein thrombosis [Unknown]
  - Alopecia [Unknown]
